FAERS Safety Report 13954161 (Version 1)
Quarter: 2017Q3

REPORT INFORMATION
  Report Type: Spontaneous
  Country: US (occurrence: US)
  Receive Date: 20170911
  Receipt Date: 20170911
  Transmission Date: 20171128
  Serious: Yes (Other)
  Sender: FDA-Public Use
  Company Number: US-APOTEX-2017AP017780

PATIENT
  Age: 34 Year
  Sex: Female

DRUGS (5)
  1. CHLORPROMAZINE. [Suspect]
     Active Substance: CHLORPROMAZINE
     Indication: HEPATO-LENTICULAR DEGENERATION
     Route: 065
  2. QUETIAPINE FUMARATE. [Suspect]
     Active Substance: QUETIAPINE FUMARATE
     Indication: HEPATO-LENTICULAR DEGENERATION
     Dosage: 400 MG, UNK
     Route: 065
  3. OLANZAPINE. [Suspect]
     Active Substance: OLANZAPINE
     Indication: HEPATO-LENTICULAR DEGENERATION
     Route: 065
  4. HALOPERIDOL. [Suspect]
     Active Substance: HALOPERIDOL
     Indication: HEPATO-LENTICULAR DEGENERATION
     Route: 065
  5. LITHIUM CARBONATE. [Suspect]
     Active Substance: LITHIUM CARBONATE
     Indication: HEPATO-LENTICULAR DEGENERATION
     Route: 065

REACTIONS (3)
  - Drug ineffective [Unknown]
  - Extrapyramidal disorder [Recovered/Resolved]
  - Akathisia [Unknown]
